FAERS Safety Report 8842324 (Version 5)
Quarter: 2014Q1

REPORT INFORMATION
  Report Type: Spontaneous
  Country: US (occurrence: US)
  Receive Date: 20121016
  Receipt Date: 20140121
  Transmission Date: 20141002
  Serious: Yes (Hospitalization, Disabling, Other)
  Sender: FDA-Public Use
  Company Number: US-009507513-1210USA004456

PATIENT
  Sex: Female
  Weight: 74.83 kg

DRUGS (4)
  1. FOSAMAX [Suspect]
     Indication: OSTEOPOROSIS
     Dosage: 10 MG, QD
     Route: 048
     Dates: start: 20010125
  2. FOSAMAX [Suspect]
     Dosage: UNK
     Route: 048
     Dates: end: 2005
  3. FOSAMAX [Suspect]
     Indication: OSTEOPOROSIS
     Dosage: UNK
     Route: 048
     Dates: start: 200802, end: 2010
  4. RECLAST [Concomitant]
     Indication: OSTEOPOROSIS
     Dosage: UNK, QD

REACTIONS (7)
  - Femur fracture [Not Recovered/Not Resolved]
  - Intramedullary rod insertion [Unknown]
  - Low turnover osteopathy [Not Recovered/Not Resolved]
  - Haemorrhagic anaemia [Unknown]
  - Osteopenia [Unknown]
  - Limb asymmetry [Unknown]
  - Arthralgia [Not Recovered/Not Resolved]
